FAERS Safety Report 16142447 (Version 1)
Quarter: 2019Q2

REPORT INFORMATION
  Report Type: Spontaneous
  Country: CA (occurrence: CA)
  Receive Date: 20190401
  Receipt Date: 20190401
  Transmission Date: 20190711
  Serious: Yes (Life-Threatening, Hospitalization, Other)
  Sender: FDA-Public Use
  Company Number: CA-PFIZER INC-2019139092

PATIENT
  Age: 20 Year
  Sex: Male
  Weight: 66 kg

DRUGS (9)
  1. BLINATUMOMAB [Suspect]
     Active Substance: BLINATUMOMAB
     Indication: B-CELL TYPE ACUTE LEUKAEMIA
     Dosage: UNK
     Route: 065
  2. NABILONE [Concomitant]
     Active Substance: NABILONE
     Dosage: 1 MG, 3X/DAY
     Route: 048
  3. PROCYTOX [Suspect]
     Active Substance: CYCLOPHOSPHAMIDE
     Indication: BONE MARROW TRANSPLANT REJECTION
     Dosage: 2000 MG, UNK
     Route: 065
  4. NABILONE [Concomitant]
     Active Substance: NABILONE
     Dosage: 1 MG, 3X/DAY
     Route: 048
  5. ZYLOPRIM [Concomitant]
     Active Substance: ALLOPURINOL
     Indication: PROPHYLAXIS
     Dosage: 300 MG, 2X/DAY
     Route: 048
  6. INOTUZUMAB OZOGAMICIN [Suspect]
     Active Substance: INOTUZUMAB OZOGAMICIN
     Indication: ACUTE LEUKAEMIA
     Dosage: UNK, 1X/DAY
     Route: 042
  7. PROCYTOX [Suspect]
     Active Substance: CYCLOPHOSPHAMIDE
     Dosage: UNK
     Route: 065
  8. ZYLOPRIM [Concomitant]
     Active Substance: ALLOPURINOL
     Dosage: 300 MG, 2X/DAY
     Route: 048
  9. INOTUZUMAB OZOGAMICIN [Suspect]
     Active Substance: INOTUZUMAB OZOGAMICIN
     Dosage: UNK, 1X/DAY
     Route: 042

REACTIONS (4)
  - Acute kidney injury [Recovering/Resolving]
  - Treatment failure [Recovering/Resolving]
  - Venoocclusive liver disease [Recovering/Resolving]
  - Encephalopathy [Recovering/Resolving]
